FAERS Safety Report 6057652-2 (Version None)
Quarter: 2009Q1

REPORT INFORMATION
  Report Type: 
  Country: None (occurrence: None)
  Receive Date: 20090129
  Receipt Date: 20090120
  Transmission Date: 20090719
  Serious: Yes (Life-Threatening, Hospitalization)
  Sender: FDA-Public Use
  Company Number: FR-WYE-H06857508

PATIENT
  Age: 27 Year
  Sex: Male

DRUGS (2)
  1. PANTOPRAZOLE SODIUM [Suspect]
     Indication: OESOPHAGITIS
     Dosage: UNKNOWN
     Route: 048
     Dates: start: 20080924, end: 20080924
  2. VOLTARENE [Concomitant]
     Dosage: UNKNOWN

REACTIONS (2)
  - ANAPHYLACTOID SHOCK [None]
  - BURNING SENSATION [None]
